FAERS Safety Report 9636047 (Version 1)
Quarter: 2013Q4

REPORT INFORMATION
  Report Type: Spontaneous
  Country: FR (occurrence: FR)
  Receive Date: 20131021
  Receipt Date: 20131021
  Transmission Date: 20140711
  Serious: Yes (Hospitalization)
  Sender: FDA-Public Use
  Company Number: FR-PFIZER INC-2013296684

PATIENT
  Age: 64 Year
  Sex: Male

DRUGS (4)
  1. TRIATEC [Suspect]
     Indication: HYPERTENSION
     Dosage: 1 DF, DAILY
     Route: 048
  2. CARDENSIEL [Concomitant]
     Dosage: UNK
  3. ALDACTONE [Concomitant]
     Dosage: UNK
  4. PREVISCAN [Concomitant]

REACTIONS (3)
  - Fall [Unknown]
  - Malaise [Recovered/Resolved]
  - Orthostatic hypotension [Recovered/Resolved]
